FAERS Safety Report 23134754 (Version 1)
Quarter: 2023Q4

REPORT INFORMATION
  Report Type: Spontaneous
  Country: HR (occurrence: HR)
  Receive Date: 20231101
  Receipt Date: 20231101
  Transmission Date: 20240109
  Serious: Yes (Other)
  Sender: FDA-Public Use
  Company Number: HR-PFIZER INC-202300347930

PATIENT
  Age: 16 Year
  Sex: Female

DRUGS (2)
  1. CORTEF [Suspect]
     Active Substance: HYDROCORTISONE
     Dosage: 10 MG, 3X/DAY
  2. FLUDROCORTISONE [Suspect]
     Active Substance: FLUDROCORTISONE
     Dosage: 0.5 MG, 1X/DAY

REACTIONS (1)
  - Deep vein thrombosis [Recovered/Resolved]
